FAERS Safety Report 9491497 (Version 2)
Quarter: 2013Q1

REPORT INFORMATION
  Report Type: Not Available
  Country: US (occurrence: US)
  Receive Date: 20121219
  Receipt Date: 20121219
  Transmission Date: 20140127
  Serious: Yes (Hospitalization)
  Sender: FDA-Public Use
  Company Number: US-LUNDBECK-DKLU1057954

PATIENT
  Age: 8 None
  Sex: Female
  Weight: 27.8 kg

DRUGS (15)
  1. CLOBAZAM [Suspect]
     Indication: LENNOX-GASTAUT SYNDROME
     Route: 048
     Dates: start: 20060303
  2. MIRALAX [Concomitant]
     Indication: CONSTIPATION
     Route: 048
     Dates: start: 20060922
  3. DULCOLAX [Concomitant]
     Indication: CONSTIPATION
     Route: 050
     Dates: start: 20060924, end: 20061001
  4. ANCEF [Concomitant]
     Indication: BACTERIAL INFECTION
     Route: 050
     Dates: start: 20060929, end: 20060930
  5. ZELNORM [Concomitant]
     Indication: CONSTIPATION
     Route: 048
     Dates: start: 20060922
  6. MORPHINE SULFATE [Concomitant]
     Indication: PAIN
     Route: 050
     Dates: start: 20060929
  7. MELATONIN [Concomitant]
     Indication: PRODUCT USED FOR UNKNOWN INDICATION
     Route: 050
  8. ZELNORM [Concomitant]
     Indication: PRODUCT USED FOR UNKNOWN INDICATION
     Route: 050
  9. CARNITINE [Concomitant]
     Indication: PRODUCT USED FOR UNKNOWN INDICATION
     Route: 050
  10. FELBAMATE [Concomitant]
     Indication: CONVULSION
     Route: 048
     Dates: start: 20060708
  11. LYRICA [Concomitant]
     Indication: CONVULSION
     Route: 048
     Dates: start: 20060601, end: 20060825
  12. DEPAKOTE SPRINKLES [Concomitant]
     Indication: CONVULSION
     Route: 048
     Dates: start: 20060925
  13. MULTIVITAMIN [Concomitant]
     Indication: NUTRITIONAL SUPPLEMENTATION
     Route: 048
     Dates: start: 20020412
  14. AUGMENTIN [Concomitant]
     Indication: PNEUMONIA
     Route: 048
     Dates: start: 20060310, end: 20060320
  15. TYLENOL [Concomitant]
     Indication: PAIN
     Route: 048
     Dates: start: 20070111

REACTIONS (1)
  - Petit mal epilepsy [Recovered/Resolved]
